FAERS Safety Report 5366564-9 (Version None)
Quarter: 2007Q2

REPORT INFORMATION
  Report Type: 
  Country: None (occurrence: None)
  Receive Date: 20070622
  Receipt Date: 20070618
  Transmission Date: 20071010
  Serious: Yes (Hospitalization)
  Sender: FDA-Public Use
  Company Number: FR-PFIZER INC-2007050083

PATIENT
  Sex: Female
  Weight: 78 kg

DRUGS (3)
  1. SOLU-MEDROL [Suspect]
     Indication: BONE MARROW FAILURE
     Route: 042
  2. PENTAMIDINE ISETHIONATE [Suspect]
     Indication: BONE MARROW FAILURE
     Route: 055
  3. CYCLOSPORINE [Suspect]
     Indication: BONE MARROW FAILURE
     Route: 048
     Dates: start: 20070407, end: 20070428

REACTIONS (2)
  - HYPERGLYCAEMIA [None]
  - PROTEINURIA [None]
